FAERS Safety Report 6078708-4 (Version None)
Quarter: 2009Q1

REPORT INFORMATION
  Report Type: 
  Country: None (occurrence: None)
  Receive Date: 20090216
  Receipt Date: 20090203
  Transmission Date: 20090719
  Serious: Yes (Hospitalization)
  Sender: FDA-Public Use
  Company Number: PL-AMGEN-US333177

PATIENT
  Age: 54 Year
  Sex: Female

DRUGS (2)
  1. ENBREL [Suspect]
     Indication: PSORIASIS
     Route: 058
     Dates: start: 20070925, end: 20080307
  2. ENBREL [Suspect]
     Route: 058
     Dates: start: 20080505, end: 20080630

REACTIONS (3)
  - CERVICAL POLYP [None]
  - IMPETIGO [None]
  - SKIN EROSION [None]
